FAERS Safety Report 10529715 (Version 1)
Quarter: 2014Q4

REPORT INFORMATION
  Report Type: Spontaneous
  Country: GR (occurrence: GR)
  Receive Date: 20141021
  Receipt Date: 20141021
  Transmission Date: 20150528
  Serious: Yes (Death, Other)
  Sender: FDA-Public Use
  Company Number: GR-ROCHE-1476533

PATIENT
  Age: 64 Year
  Sex: Male

DRUGS (4)
  1. APROVEL [Concomitant]
     Active Substance: IRBESARTAN
     Indication: HYPERTENSION
  2. AFINITOR [Suspect]
     Active Substance: EVEROLIMUS
     Indication: RENAL CANCER
     Route: 065
     Dates: start: 201205
  3. PEGASYS [Suspect]
     Active Substance: PEGINTERFERON ALFA-2A
     Indication: HEPATITIS C
     Route: 065
     Dates: start: 200303, end: 200403
  4. RIFAMPICIN [Suspect]
     Active Substance: RIFAMPIN
     Indication: HEPATITIS C
     Route: 065
     Dates: start: 200303, end: 200403

REACTIONS (6)
  - Renal cancer [Unknown]
  - Hepatic haemorrhage [Unknown]
  - Ascites [Fatal]
  - Renal cyst [Unknown]
  - Metastases to peritoneum [Not Recovered/Not Resolved]
  - Metastases to lung [Recovered/Resolved]

NARRATIVE: CASE EVENT DATE: 2011
